FAERS Safety Report 16862367 (Version 2)
Quarter: 2021Q4

REPORT INFORMATION
  Report Type: Spontaneous
  Country: CA (occurrence: CA)
  Receive Date: 20190927
  Receipt Date: 20211109
  Transmission Date: 20220303
  Serious: Yes (Life-Threatening, Hospitalization)
  Sender: FDA-Public Use
  Company Number: CA-AUROBINDO-AUR-APL-2019-062688

PATIENT
  Age: 37 Year
  Sex: Female
  Weight: 61 kg

DRUGS (1)
  1. CITALOPRAM [Suspect]
     Active Substance: CITALOPRAM HYDROBROMIDE
     Indication: Depression
     Dosage: 0.5 DOSAGE FORM, ONCE A DAY
     Route: 048

REACTIONS (3)
  - Pharyngeal paraesthesia [Recovered/Resolved]
  - Swollen tongue [Recovered/Resolved]
  - Throat tightness [Recovered/Resolved]
